FAERS Safety Report 6289135-9 (Version None)
Quarter: 2009Q3

REPORT INFORMATION
  Report Type: 
  Country: None (occurrence: None)
  Receive Date: 20090728
  Receipt Date: 20090722
  Transmission Date: 20100115
  Serious: No
  Sender: FDA-Public Use
  Company Number: 090226

PATIENT
  Age: 45 Year
  Sex: Male

DRUGS (1)
  1. HALFLYTELY [Suspect]
     Indication: COLONOSCOPY
     Dosage: 10MG/2L/1X/PO
     Route: 048
     Dates: start: 20090722

REACTIONS (2)
  - CHEST PAIN [None]
  - DYSPNOEA [None]
